FAERS Safety Report 4452342-1 (Version None)
Quarter: 2004Q3

REPORT INFORMATION
  Report Type: 
  Country: None (occurrence: None)
  Receive Date: 20040915
  Receipt Date: 20040907
  Transmission Date: 20050211
  Serious: Yes (Death, Life-Threatening, Hospitalization)
  Sender: FDA-Public Use
  Company Number: 200410583BNE

PATIENT
  Age: 49 Year
  Sex: Male
  Weight: 85 kg

DRUGS (11)
  1. ASPIRIN [Suspect]
     Dosage: ORAL
     Route: 048
     Dates: end: 20040826
  2. WARFARIN SODIUM [Suspect]
     Indication: ATRIAL FIBRILLATION
     Dosage: ORAL
     Route: 048
     Dates: end: 20040826
  3. WARFARIN SODIUM [Suspect]
     Indication: CEREBROVASCULAR ACCIDENT
     Dosage: ORAL
     Route: 048
     Dates: end: 20040826
  4. DIGOXIN [Concomitant]
  5. SIMVASTATIN [Concomitant]
  6. DOXAZOSIN [Concomitant]
  7. ENALAPRIL MALEATE [Concomitant]
  8. FLUOXETINE [Concomitant]
  9. AMLODIPINE [Concomitant]
  10. BENDROFLUAZIDE [Concomitant]
  11. ATENOLOL [Concomitant]

REACTIONS (4)
  - CIRCULATORY COLLAPSE [None]
  - HAEMORRHAGE INTRACRANIAL [None]
  - HYDROCEPHALUS [None]
  - PUPIL FIXED [None]
